FAERS Safety Report 4648922-0 (Version None)
Quarter: 2005Q2

REPORT INFORMATION
  Report Type: 
  Country: None (occurrence: None)
  Receive Date: 20050427
  Receipt Date: 20050420
  Transmission Date: 20051028
  Serious: Yes (Other)
  Sender: FDA-Public Use
  Company Number: 2005054448

PATIENT
  Age: 65 Year
  Sex: Male
  Weight: 86.1834 kg

DRUGS (7)
  1. LIPITOR [Suspect]
     Indication: BLOOD CHOLESTEROL INCREASED
     Dosage: 10 MG (10 MG, 1 IN 1 D), ORAL
     Route: 048
  2. ACETAMINOPHEN [Concomitant]
  3. FOLIC ACID [Concomitant]
  4. HYDROCHLOROTHIAZIDE [Concomitant]
  5. QUINAPRIL HCL [Concomitant]
  6. TAMSULOSIN HYDROCHLORIDE (TAMSULOSIN HYDROCHLORIDE) [Concomitant]
  7. ASPIRIN [Concomitant]

REACTIONS (1)
  - THYROID GLAND CANCER [None]
